FAERS Safety Report 15075470 (Version 1)
Quarter: 2018Q2

REPORT INFORMATION
  Report Type: Report from Study
  Country: US (occurrence: US)
  Receive Date: 20180627
  Receipt Date: 20180627
  Transmission Date: 20180711
  Serious: Yes (Other)
  Sender: FDA-Public Use
  Company Number: US-SAOL THERAPEUTICS-2018SAO00448

PATIENT
  Age: 53 Year
  Sex: Female

DRUGS (4)
  1. COMPOUNDED BACLOFEN [Suspect]
     Active Substance: BACLOFEN
     Dosage: 1027.1 ?G, \DAY, MAXIMUM TOTAL DAILY DOSE
     Route: 037
     Dates: start: 20180219
  2. FENTANYL. [Suspect]
     Active Substance: FENTANYL
     Dosage: 1711.8 ?G, \DAY, MAXIMUM TOTAL DAILY DOSE
     Route: 037
     Dates: start: 20180219
  3. COMPOUNDED BACLOFEN [Suspect]
     Active Substance: BACLOFEN
     Dosage: 929.6 ?G, \DAY
     Route: 037
     Dates: start: 20180219
  4. FENTANYL. [Suspect]
     Active Substance: FENTANYL
     Dosage: 1549.4 ?G, \DAY
     Route: 037
     Dates: start: 20180219

REACTIONS (3)
  - Implant site extravasation [Recovered/Resolved]
  - Muscle spasms [Recovered/Resolved]
  - Device dislocation [Recovered/Resolved]

NARRATIVE: CASE EVENT DATE: 20180219
